FAERS Safety Report 6299597-9 (Version None)
Quarter: 2009Q3

REPORT INFORMATION
  Report Type: 
  Country: None (occurrence: None)
  Receive Date: 20090806
  Receipt Date: 20090725
  Transmission Date: 20100115
  Serious: Yes (Other)
  Sender: FDA-Public Use
  Company Number: DE-ELI_LILLY_AND_COMPANY-DE200907005771

PATIENT
  Sex: Male

DRUGS (5)
  1. BYETTA [Suspect]
     Indication: TYPE 2 DIABETES MELLITUS
     Dosage: 5 UG, 2/D
     Route: 065
     Dates: start: 20090720
  2. GLIB [Concomitant]
     Dosage: 10.5 MG, UNKNOWN
     Route: 065
  3. LORZAAR [Concomitant]
     Dosage: 100 MG, UNKNOWN
     Route: 065
  4. BELOC ZOK [Concomitant]
     Dosage: UNK, UNKNOWN
     Route: 065
  5. METFORMIN [Concomitant]
     Dosage: 1700 MG, UNKNOWN
     Route: 065

REACTIONS (2)
  - DERAILMENT [None]
  - HYPERTENSION [None]
